FAERS Safety Report 25613431 (Version 1)
Quarter: 2025Q3

REPORT INFORMATION
  Report Type: Spontaneous
  Country: US (occurrence: None)
  Receive Date: 20250728
  Receipt Date: 20250728
  Transmission Date: 20251021
  Serious: Yes (Disabling)
  Sender: FDA-CTU
  Company Number: None

PATIENT
  Age: 54 Year
  Sex: Female
  Weight: 48.15 kg

DRUGS (1)
  1. DOVATO [Suspect]
     Active Substance: DOLUTEGRAVIR SODIUM\LAMIVUDINE
     Indication: HIV infection
     Dates: start: 20250401, end: 20250726

REACTIONS (9)
  - Eye irritation [None]
  - Decreased appetite [None]
  - Abdominal pain upper [None]
  - Nausea [None]
  - Dizziness [None]
  - Eye pruritus [None]
  - Insomnia [None]
  - Dysphagia [None]
  - Excessive eye blinking [None]

NARRATIVE: CASE EVENT DATE: 20250726
